FAERS Safety Report 15266240 (Version 1)
Quarter: 2018Q3

REPORT INFORMATION
  Report Type: Spontaneous
  Country: US (occurrence: US)
  Receive Date: 20180810
  Receipt Date: 20180810
  Transmission Date: 20181010
  Serious: No
  Sender: FDA-Public Use
  Company Number: US-BAYER-2018-150223

PATIENT
  Age: 16 Year
  Sex: Female
  Weight: 62 kg

DRUGS (1)
  1. LOTRIMIN ULTRA [Suspect]
     Active Substance: BUTENAFINE HYDROCHLORIDE
     Indication: THERAPEUTIC SKIN CARE TOPICAL
     Dosage: 1 DF, QD
     Route: 061
     Dates: start: 20180725, end: 20180807

REACTIONS (1)
  - Drug ineffective [Unknown]

NARRATIVE: CASE EVENT DATE: 20180808
